FAERS Safety Report 9084111 (Version 1)
Quarter: 2013Q1

REPORT INFORMATION
  Report Type: Spontaneous
  Country: PR (occurrence: PR)
  Receive Date: 20130130
  Receipt Date: 20130130
  Transmission Date: 20140127
  Serious: No
  Sender: FDA-Public Use
  Company Number: PR-ABBOTT-12P-131-0903039-00

PATIENT
  Sex: Male
  Weight: 82.63 kg

DRUGS (4)
  1. HUMIRA 40 MG/0.8 ML PEN [Suspect]
     Indication: PSORIASIS
     Route: 058
     Dates: start: 2007, end: 201202
  2. METHOTREXATE [Concomitant]
     Indication: PSORIASIS
     Route: 030
  3. LISINOPRIL [Concomitant]
     Indication: HYPERTENSION
     Dosage: 1/2 TABLET DAILY
     Route: 048
  4. PEPCID [Concomitant]
     Indication: GASTROOESOPHAGEAL REFLUX DISEASE
     Route: 048

REACTIONS (1)
  - Nasopharyngitis [Recovered/Resolved]
